FAERS Safety Report 4572452-8 (Version None)
Quarter: 2005Q1

REPORT INFORMATION
  Report Type: 
  Country: None (occurrence: None)
  Receive Date: 20050207
  Receipt Date: 20050107
  Transmission Date: 20050727
  Serious: Yes (Life-Threatening, Other)
  Sender: FDA-Public Use
  Company Number: PHBS2005JP00734

PATIENT
  Age: 36 Year
  Sex: Male
  Weight: 45 kg

DRUGS (9)
  1. NAFAMOSTAT [Concomitant]
     Indication: PANCREATITIS
     Dosage: 200 MG/DAY
     Route: 041
     Dates: start: 20041130
  2. PRODIF [Concomitant]
     Indication: FUNGAL INFECTION
     Dosage: 8 DF/DAY
     Route: 041
     Dates: start: 20041120, end: 20041128
  3. SANDOSTATIN [Suspect]
     Indication: PANCREATITIS CHRONIC
     Dosage: 150 UG/D
     Route: 058
     Dates: start: 20041025, end: 20041029
  4. SANDOSTATIN [Suspect]
     Dosage: 300 UG/DAY
     Route: 058
     Dates: start: 20041030, end: 20041129
  5. SANDOSTATIN [Suspect]
     Dosage: 150 UG/DAY
     Route: 058
     Dates: start: 20050122
  6. REMINARON [Suspect]
     Indication: PANCREATITIS
     Dosage: 200 MG/DAY
     Route: 041
     Dates: start: 20041025, end: 20041129
  7. MIRACLID [Concomitant]
     Indication: PANCREATITIS
     Dosage: 300 KIU/DAY
     Route: 042
     Dates: start: 20041025, end: 20041129
  8. TIENAM [Concomitant]
     Indication: PANCREATITIS
     Dosage: 2 G/DAY
     Route: 042
     Dates: start: 20041025, end: 20041114
  9. PENTCILLIN [Concomitant]
     Indication: PANCREATITIS
     Dosage: 4 G/DAY
     Route: 042
     Dates: start: 20041025, end: 20041114

REACTIONS (6)
  - BLOOD BETA-D-GLUCAN INCREASED [None]
  - EOSINOPHILIA [None]
  - FUNGAL INFECTION [None]
  - PLATELET COUNT DECREASED [None]
  - PYREXIA [None]
  - SUPERINFECTION [None]
